FAERS Safety Report 18732353 (Version 3)
Quarter: 2021Q1

REPORT INFORMATION
  Report Type: Spontaneous
  Country: IN (occurrence: IN)
  Receive Date: 20210112
  Receipt Date: 20210215
  Transmission Date: 20210419
  Serious: Yes (Death, Hospitalization, Other)
  Sender: FDA-Public Use
  Company Number: IN-MYLANLABS-2021M1001439

PATIENT
  Age: 21 Year
  Sex: Female
  Weight: 28 kg

DRUGS (13)
  1. OMEPRAZOLE. [Concomitant]
     Active Substance: OMEPRAZOLE
     Indication: ANTACID THERAPY
     Dosage: UNK
     Route: 065
     Dates: start: 20201228
  2. IMIPENEM [Suspect]
     Active Substance: IMIPENEM
     Indication: PULMONARY TUBERCULOSIS
     Dosage: 1 GRAM, BID
     Route: 065
     Dates: start: 20201228
  3. CLOFAZIMINE [Suspect]
     Active Substance: CLOFAZIMINE
     Indication: PULMONARY TUBERCULOSIS
     Dosage: 100 MILLIGRAM, QD
     Route: 065
     Dates: start: 20201228
  4. LEVETIRACETAM. [Concomitant]
     Active Substance: LEVETIRACETAM
     Indication: SEIZURE PROPHYLAXIS
     Dosage: UNK
     Route: 065
     Dates: start: 20201228
  5. LEVETIRACETAM. [Concomitant]
     Active Substance: LEVETIRACETAM
     Dosage: UNK
     Route: 065
     Dates: start: 202009
  6. DELAMANID [Suspect]
     Active Substance: DELAMANID
     Indication: PULMONARY TUBERCULOSIS
     Dosage: 50 MILLIGRAM, BID
     Route: 065
     Dates: start: 20201228
  7. PYRIDOXINE [Concomitant]
     Active Substance: PYRIDOXINE
     Indication: PROPHYLAXIS
     Dosage: UNK
     Route: 065
     Dates: start: 20201228
  8. BEDAQUILINE [Suspect]
     Active Substance: BEDAQUILINE
     Indication: PULMONARY TUBERCULOSIS
     Dosage: 200 MILLIGRAM, QD
     Route: 065
     Dates: start: 20201228
  9. MOXIFLOXACIN. [Suspect]
     Active Substance: MOXIFLOXACIN
     Indication: PULMONARY TUBERCULOSIS
     Dosage: 400 MILLIGRAM, QD
     Route: 065
     Dates: start: 20201228
  10. AMOXCLAV                           /00852501/ [Concomitant]
     Active Substance: AMOXICILLIN\CLAVULANIC ACID
     Indication: PULMONARY TUBERCULOSIS
     Dosage: UNK
     Route: 065
     Dates: start: 20201228
  11. CYCLOSERINE. [Concomitant]
     Active Substance: CYCLOSERINE
     Indication: PULMONARY TUBERCULOSIS
     Dosage: UNK
     Route: 065
     Dates: start: 20201228
  12. METOCLOPRAMIDE. [Concomitant]
     Active Substance: METOCLOPRAMIDE
     Indication: PROPHYLAXIS OF NAUSEA AND VOMITING
     Dosage: UNK
     Route: 065
     Dates: start: 20201228
  13. CALCIUM CARBONATE. [Concomitant]
     Active Substance: CALCIUM CARBONATE
     Indication: MINERAL SUPPLEMENTATION
     Dosage: UNK
     Route: 065
     Dates: start: 20201228

REACTIONS (6)
  - Vomiting [Unknown]
  - Respiratory failure [Fatal]
  - White blood cell count increased [Unknown]
  - Dyspnoea [Unknown]
  - Aspartate aminotransferase increased [Unknown]
  - Diarrhoea [Unknown]

NARRATIVE: CASE EVENT DATE: 20201230
